FAERS Safety Report 6675515-6 (Version None)
Quarter: 2010Q2

REPORT INFORMATION
  Report Type: 
  Country: None (occurrence: None)
  Receive Date: 20100409
  Receipt Date: 20100329
  Transmission Date: 20101027
  Serious: Yes (Hospitalization)
  Sender: FDA-Public Use
  Company Number: PL-TEVA-229804ISR

PATIENT
  Age: 71 Year
  Sex: Male

DRUGS (3)
  1. DOXORUBICIN HCL [Suspect]
     Route: 042
  2. VINCRISTINE [Concomitant]
  3. DEXAMETHASONE [Concomitant]

REACTIONS (1)
  - CAPILLARY LEAK SYNDROME [None]
